FAERS Safety Report 18318086 (Version 4)
Quarter: 2021Q1

REPORT INFORMATION
  Report Type: Spontaneous
  Country: US (occurrence: US)
  Receive Date: 20200928
  Receipt Date: 20210302
  Transmission Date: 20210419
  Serious: No
  Sender: FDA-Public Use
  Company Number: US-PFIZER INC-2020369727

PATIENT
  Age: 60 Year
  Sex: Female

DRUGS (2)
  1. IBRANCE [Suspect]
     Active Substance: PALBOCICLIB
     Dosage: 100 MG, CYCLIC (QD (EVERYDAY) FOR 21D THEN 7D OFF)
     Route: 048
     Dates: start: 20200225
  2. IBRANCE [Suspect]
     Active Substance: PALBOCICLIB
     Indication: BREAST CANCER FEMALE
     Dosage: 100 MG, CYCLIC (QD (EVERYDAY) FOR 21D THEN 7D OFF)
     Route: 048
     Dates: start: 20200224

REACTIONS (3)
  - Abdominal discomfort [Not Recovered/Not Resolved]
  - Product dose omission in error [Unknown]
  - Nasal disorder [Not Recovered/Not Resolved]

NARRATIVE: CASE EVENT DATE: 2020
